FAERS Safety Report 5580093-9 (Version None)
Quarter: 2008Q1

REPORT INFORMATION
  Report Type: 
  Country: None (occurrence: None)
  Receive Date: 20080103
  Receipt Date: 20071227
  Transmission Date: 20080703
  Serious: Yes (Death, Hospitalization)
  Sender: FDA-Public Use
  Company Number: US-BAYER-200717174NA

PATIENT
  Age: 74 Year
  Sex: Female
  Weight: 85 kg

DRUGS (7)
  1. SORAFENIB [Suspect]
     Indication: METASTATIC RENAL CELL CARCINOMA
     Dosage: TOTAL DAILY DOSE: 800 MG  UNIT DOSE: 200 MG
     Route: 048
     Dates: start: 20071026, end: 20071220
  2. RAD 001 [Suspect]
     Indication: METASTATIC RENAL CELL CARCINOMA
     Route: 048
     Dates: start: 20071026, end: 20071216
  3. ATENOLOL [Concomitant]
     Dosage: TOTAL DAILY DOSE: 100 MG
     Dates: start: 20071001
  4. NORVASC [Concomitant]
     Dosage: TOTAL DAILY DOSE: 10 MG
  5. FLONASE [Concomitant]
     Dosage: TOTAL DAILY DOSE: 2 DF
     Route: 045
     Dates: start: 20071101
  6. TAGAMET [Concomitant]
     Indication: PRURITUS
     Dosage: TOTAL DAILY DOSE: 800 MG
     Dates: start: 20071105
  7. MULTIPLE VITAMIN [Concomitant]
     Dates: start: 20071207

REACTIONS (6)
  - COLD SWEAT [None]
  - CONSTIPATION [None]
  - DEATH [None]
  - DIARRHOEA [None]
  - FATIGUE [None]
  - RESTLESSNESS [None]
